FAERS Safety Report 16887178 (Version 2)
Quarter: 2019Q4

REPORT INFORMATION
  Report Type: Spontaneous
  Country: US (occurrence: US)
  Receive Date: 20191004
  Receipt Date: 20191211
  Transmission Date: 20200122
  Serious: No
  Sender: FDA-Public Use
  Company Number: US-009507513-1910USA002407

PATIENT
  Age: 34 Year
  Sex: Female

DRUGS (11)
  1. ESTRACE [Concomitant]
     Active Substance: ESTRADIOL
  2. FOLLISTIM AQ [Suspect]
     Active Substance: FOLLITROPIN
     Indication: INFERTILITY FEMALE
     Dosage: 100 IU INTERNATIONAL UNIT(S), QPM
     Route: 058
     Dates: start: 20190628
  3. GANIRELIX ACETATE INJECTION [Suspect]
     Active Substance: GANIRELIX ACETATE
     Indication: INFERTILITY FEMALE
     Dosage: 250 MICROGRAM, QD
     Route: 058
     Dates: start: 20190608
  4. PROGESTERONE. [Concomitant]
     Active Substance: PROGESTERONE
  5. AZITHROMYCIN ANHYDROUS. [Concomitant]
     Active Substance: AZITHROMYCIN ANHYDROUS
  6. FOLLISTIM AQ [Suspect]
     Active Substance: FOLLITROPIN
     Indication: INFERTILITY FEMALE
     Dosage: 200 IU INTERNATIONAL UNIT(S), QAM
     Route: 058
     Dates: start: 20190628
  7. FOLLISTIM AQ [Suspect]
     Active Substance: FOLLITROPIN
  8. DELESTROGEN [Concomitant]
     Active Substance: ESTRADIOL VALERATE
  9. NOVAREL [Concomitant]
     Active Substance: CHORIOGONADOTROPIN ALFA
  10. METHYLPREDNISOLONE. [Concomitant]
     Active Substance: METHYLPREDNISOLONE
  11. FOLLISTIM AQ [Suspect]
     Active Substance: FOLLITROPIN

REACTIONS (4)
  - Fatigue [Unknown]
  - Abdominal distension [Unknown]
  - Breast pain [Unknown]
  - Headache [Unknown]

NARRATIVE: CASE EVENT DATE: 20190918
